FAERS Safety Report 22081993 (Version 1)
Quarter: 2023Q1

REPORT INFORMATION
  Report Type: Spontaneous
  Country: US (occurrence: US)
  Receive Date: 20230310
  Receipt Date: 20230310
  Transmission Date: 20230417
  Serious: No
  Sender: FDA-Public Use
  Company Number: US-BIOVITRUM-2023-US-005816

PATIENT
  Age: 15 Year
  Sex: Male

DRUGS (1)
  1. KINERET [Suspect]
     Active Substance: ANAKINRA
     Indication: Pyrexia
     Route: 058
     Dates: start: 201904

REACTIONS (2)
  - Pyrexia [Unknown]
  - Condition aggravated [Unknown]
